FAERS Safety Report 17509612 (Version 2)
Quarter: 2020Q1

REPORT INFORMATION
  Report Type: Spontaneous
  Country: FI (occurrence: FI)
  Receive Date: 20200306
  Receipt Date: 20200327
  Transmission Date: 20200409
  Serious: Yes (Hospitalization)
  Sender: FDA-Public Use
  Company Number: FI-ELI_LILLY_AND_COMPANY-FI202002012790

PATIENT
  Age: 74 Year
  Sex: Female

DRUGS (3)
  1. ZYPADHERA [Suspect]
     Active Substance: OLANZAPINE PAMOATE
     Indication: PRODUCT USED FOR UNKNOWN INDICATION
     Dosage: 210 MG, UNKNOWN
     Route: 065
  2. ZYPADHERA [Suspect]
     Active Substance: OLANZAPINE PAMOATE
     Indication: PRODUCT USED FOR UNKNOWN INDICATION
     Dosage: 210 MG, UNKNOWN
     Route: 065
  3. ZYPADHERA [Suspect]
     Active Substance: OLANZAPINE PAMOATE
     Indication: PRODUCT USED FOR UNKNOWN INDICATION
     Dosage: 210 MG, UNKNOWN
     Route: 065

REACTIONS (5)
  - Dysarthria [Recovered/Resolved]
  - Feeling abnormal [Recovered/Resolved]
  - Dizziness [Recovered/Resolved]
  - Muscular weakness [Recovered/Resolved]
  - Post-injection delirium sedation syndrome [Recovered/Resolved]

NARRATIVE: CASE EVENT DATE: 20200220
